FAERS Safety Report 5268150-8 (Version None)
Quarter: 2007Q1

REPORT INFORMATION
  Report Type: 
  Country: None (occurrence: None)
  Receive Date: 20070319
  Receipt Date: 20070313
  Transmission Date: 20070707
  Serious: Yes (Life-Threatening, Hospitalization)
  Sender: FDA-Public Use
  Company Number: HQWYE544413MAR07

PATIENT
  Age: 76 Year
  Sex: Male

DRUGS (1)
  1. AMIODARONE HYDROCHLORIDE [Suspect]
     Indication: ATRIAL FIBRILLATION
     Dosage: 150 MG DAILY (6 AMPOULES OF 3 ML)
     Route: 042
     Dates: start: 20060621, end: 20060624

REACTIONS (2)
  - HYPOTENSION [None]
  - STUPOR [None]
